FAERS Safety Report 21088315 (Version 2)
Quarter: 2022Q3

REPORT INFORMATION
  Report Type: Spontaneous
  Country: JP (occurrence: JP)
  Receive Date: 20220715
  Receipt Date: 20220801
  Transmission Date: 20221027
  Serious: Yes (Hospitalization)
  Sender: FDA-Public Use
  Company Number: JP-MSD-M2022-26991

PATIENT
  Age: 63 Year
  Sex: Male

DRUGS (3)
  1. KEYTRUDA [Suspect]
     Active Substance: PEMBROLIZUMAB
     Indication: Head and neck cancer
     Dosage: 200 MILLIGRAM, Q3W
     Route: 041
     Dates: start: 202203, end: 202206
  2. CARBOPLATIN [Concomitant]
     Active Substance: CARBOPLATIN
     Dosage: 400 MILLIGRAM, Q3W
     Route: 041
     Dates: start: 202203
  3. FLUOROURACIL [Concomitant]
     Active Substance: FLUOROURACIL
     Dosage: 1000 MILLIGRAM/SQ. METER,CONTINUOUS ADMINISTRATION FROM 1ST TO 4TH DAY AT 3 WEEK INTERVALS
     Route: 041
     Dates: start: 202203

REACTIONS (2)
  - Chondritis [Recovering/Resolving]
  - Bronchial wall thickening [Unknown]

NARRATIVE: CASE EVENT DATE: 20220701
